FAERS Safety Report 15011410 (Version 3)
Quarter: 2018Q3

REPORT INFORMATION
  Report Type: Spontaneous
  Country: US (occurrence: US)
  Receive Date: 20180614
  Receipt Date: 20180706
  Transmission Date: 20181010
  Serious: Yes (Hospitalization, Disabling, Other)
  Sender: FDA-Public Use
  Company Number: US-OTSUKA-2018_015808

PATIENT
  Sex: Male

DRUGS (2)
  1. ABILIFY [Suspect]
     Active Substance: ARIPIPRAZOLE
     Indication: MAJOR DEPRESSION
     Dosage: 5 MG, QD
     Route: 065
     Dates: start: 2010
  2. ABILIFY [Suspect]
     Active Substance: ARIPIPRAZOLE
     Dosage: 10 MG, QD
     Route: 065
     Dates: end: 20180501

REACTIONS (14)
  - Mental disorder [Recovered/Resolved]
  - Emotional distress [Unknown]
  - Social problem [Unknown]
  - Compulsive shopping [Recovered/Resolved]
  - Loss of employment [Unknown]
  - Anhedonia [Unknown]
  - Injury [Unknown]
  - Mental impairment [Unknown]
  - Suicide attempt [Recovered/Resolved]
  - Gambling disorder [Recovered/Resolved]
  - Economic problem [Unknown]
  - Bankruptcy [Unknown]
  - Disability [Unknown]
  - Suicidal ideation [Recovered/Resolved]
